FAERS Safety Report 6384482-4 (Version None)
Quarter: 2009Q3

REPORT INFORMATION
  Report Type: 
  Country: None (occurrence: None)
  Receive Date: 20090929
  Receipt Date: 20090922
  Transmission Date: 20100115
  Serious: Yes (Other)
  Sender: FDA-Public Use
  Company Number: 2009SP021259

PATIENT
  Age: 38 Year
  Sex: Male
  Weight: 75 kg

DRUGS (2)
  1. PEG-INTRON [Suspect]
     Indication: HEPATITIS D
     Dosage: QW; SC
     Route: 058
     Dates: start: 20080505, end: 20080825
  2. ACETAMINOPHEN [Suspect]
     Dosage: 1 GM; QW
     Dates: start: 20080505, end: 20080825

REACTIONS (4)
  - ALANINE AMINOTRANSFERASE INCREASED [None]
  - ASPARTATE AMINOTRANSFERASE INCREASED [None]
  - GAMMA-GLUTAMYLTRANSFERASE INCREASED [None]
  - HEPATIC FUNCTION ABNORMAL [None]
